FAERS Safety Report 7686635-1 (Version None)
Quarter: 2011Q3

REPORT INFORMATION
  Report Type: 
  Country: None (occurrence: None)
  Receive Date: 20110816
  Receipt Date: 20110816
  Transmission Date: 20111222
  Serious: Yes (Hospitalization)
  Sender: FDA-Public Use
  Company Number: None

PATIENT
  Age: 70 Year
  Sex: Female
  Weight: 110.8 kg

DRUGS (2)
  1. SIMAVASTATIN [Suspect]
     Indication: HYPERLIPIDAEMIA
     Dosage: 80 MG
     Route: 048
  2. GEMFIBROZIL [Concomitant]
     Indication: HYPERLIPIDAEMIA
     Dosage: 600 MG
     Route: 048

REACTIONS (5)
  - MUSCULAR WEAKNESS [None]
  - RHABDOMYOLYSIS [None]
  - PAIN [None]
  - FATIGUE [None]
  - RENAL FAILURE ACUTE [None]
